FAERS Safety Report 7206498-8 (Version None)
Quarter: 2010Q4

REPORT INFORMATION
  Report Type: 
  Country: None (occurrence: None)
  Receive Date: 20101217
  Receipt Date: 20101214
  Transmission Date: 20110411
  Serious: Yes (Hospitalization)
  Sender: FDA-Public Use
  Company Number: 2010US000076

PATIENT
  Age: 56 Year
  Sex: Female

DRUGS (5)
  1. ENTEREG [Suspect]
     Indication: PROCEDURAL PAIN
     Dosage: 12 MG; PO
     Route: 048
     Dates: start: 20101014, end: 20101019
  2. LOVENOX [Concomitant]
  3. PROTONIX [Concomitant]
  4. ZOFRAN [Concomitant]
  5. MORPHINE [Concomitant]

REACTIONS (2)
  - DEEP VEIN THROMBOSIS [None]
  - PULMONARY EMBOLISM [None]
